FAERS Safety Report 11792713 (Version 1)
Quarter: 2015Q4

REPORT INFORMATION
  Report Type: Spontaneous
  Country: US (occurrence: None)
  Receive Date: 20151130
  Receipt Date: 20151130
  Transmission Date: 20160305
  Serious: Yes (Hospitalization)
  Sender: FDA-Public Use
  Company Number: None

PATIENT
  Age: 74 Year
  Sex: Female
  Weight: 58.6 kg

DRUGS (1)
  1. GEMCITABINE HCL [Suspect]
     Active Substance: GEMCITABINE HYDROCHLORIDE
     Dates: end: 20151110

REACTIONS (3)
  - Palpitations [None]
  - Tachycardia [None]
  - Atrial flutter [None]

NARRATIVE: CASE EVENT DATE: 20151117
